FAERS Safety Report 9720554 (Version 1)
Quarter: 2013Q4

REPORT INFORMATION
  Report Type: Spontaneous
  Country: US (occurrence: US)
  Receive Date: 20131129
  Receipt Date: 20131129
  Transmission Date: 20140711
  Serious: Yes (Other)
  Sender: FDA-Public Use
  Company Number: US-ASTRAZENECA-2013SE86173

PATIENT
  Age: 80 Year
  Sex: Female

DRUGS (1)
  1. CAPRELSA [Suspect]
     Route: 048

REACTIONS (1)
  - Thyroid cancer stage IV [Unknown]
